FAERS Safety Report 6897143-X (Version None)
Quarter: 2010Q3

REPORT INFORMATION
  Report Type: 
  Country: None (occurrence: None)
  Receive Date: 20100802
  Receipt Date: 20070418
  Transmission Date: 20110219
  Serious: No
  Sender: FDA-Public Use
  Company Number: US-PFIZER INC-2007031761

PATIENT
  Sex: Female

DRUGS (2)
  1. LYRICA [Suspect]
     Indication: GAIT DISTURBANCE
     Dosage: 6 EVERY 1 DAYS
     Dates: start: 20061201
  2. LIPITOR [Concomitant]

REACTIONS (4)
  - GAIT DISTURBANCE [None]
  - INCREASED APPETITE [None]
  - SOMNOLENCE [None]
  - WEIGHT INCREASED [None]
